FAERS Safety Report 5152316-1 (Version None)
Quarter: 2006Q4

REPORT INFORMATION
  Report Type: 
  Country: None (occurrence: None)
  Receive Date: 20061116
  Receipt Date: 20061108
  Transmission Date: 20070319
  Serious: Yes (Other)
  Sender: FDA-Public Use
  Company Number: CN-ROCHE-470290

PATIENT
  Age: 42 Year
  Sex: Male

DRUGS (1)
  1. PEGASYS [Suspect]
     Indication: HEPATITIS B
     Dosage: ROUTE REPORTED AS HYPODERMIC. THE PATIENT RECEIVED A TOTAL OF THREE ADMINISTRATIONS.
     Route: 050
     Dates: start: 20061023, end: 20061106

REACTIONS (1)
  - ALPHA 1 FOETOPROTEIN INCREASED [None]
